FAERS Safety Report 12965845 (Version 2)
Quarter: 2016Q4

REPORT INFORMATION
  Report Type: Spontaneous
  Country: RO (occurrence: RO)
  Receive Date: 20161122
  Receipt Date: 20161213
  Transmission Date: 20170207
  Serious: Yes (Other)
  Sender: FDA-Public Use
  Company Number: ALCN2016RO007651

PATIENT
  Age: 14 Year
  Sex: Male

DRUGS (2)
  1. TOBRAMYCIN. [Suspect]
     Active Substance: TOBRAMYCIN
     Indication: BLEPHARITIS
  2. TOBRAMYCIN. [Suspect]
     Active Substance: TOBRAMYCIN
     Indication: CONJUNCTIVITIS
     Dosage: UNK
     Route: 047

REACTIONS (12)
  - Eyelid oedema [Recovering/Resolving]
  - Incorrect drug administration duration [Unknown]
  - Visual acuity reduced [Recovering/Resolving]
  - Eye pruritus [Recovering/Resolving]
  - Lacrimation increased [Recovering/Resolving]
  - Ocular hyperaemia [Recovering/Resolving]
  - Photophobia [Recovering/Resolving]
  - Ulcerative keratitis [Not Recovered/Not Resolved]
  - Atopic keratoconjunctivitis [Recovering/Resolving]
  - Corneal epithelium defect [Recovered/Resolved]
  - Eye discharge [Recovering/Resolving]
  - Corneal oedema [Recovering/Resolving]
